FAERS Safety Report 15651208 (Version 3)
Quarter: 2019Q1

REPORT INFORMATION
  Report Type: Report from Study
  Country: US (occurrence: US)
  Receive Date: 20181123
  Receipt Date: 20190314
  Transmission Date: 20190417
  Serious: Yes (Life-Threatening, Hospitalization, Other)
  Sender: FDA-Public Use
  Company Number: US-ROCHE-2215568

PATIENT

DRUGS (6)
  1. ATEZOLIZUMAB. [Suspect]
     Active Substance: ATEZOLIZUMAB
     Indication: ANAPLASTIC THYROID CANCER
     Route: 042
  2. COBIMETINIB. [Suspect]
     Active Substance: COBIMETINIB
     Indication: ANAPLASTIC THYROID CANCER
     Dosage: FROM DAYS 1 TO 21 OF 28 DAY CYCLE
     Route: 048
  3. VEMURAFENIB. [Suspect]
     Active Substance: VEMURAFENIB
     Indication: ANAPLASTIC THYROID CANCER
     Route: 048
  4. PACLITAXEL. [Suspect]
     Active Substance: PACLITAXEL
     Indication: ANAPLASTIC THYROID CANCER
     Route: 042
  5. NAB-PACLITAXEL [Suspect]
     Active Substance: PACLITAXEL
     Indication: ANAPLASTIC THYROID CANCER
     Route: 065
  6. BEVACIZUMAB. [Suspect]
     Active Substance: BEVACIZUMAB
     Indication: ANAPLASTIC THYROID CANCER
     Route: 042

REACTIONS (3)
  - Hypoxia [Not Recovered/Not Resolved]
  - Hypoxia [Unknown]
  - Endocrine disorder [Unknown]

NARRATIVE: CASE EVENT DATE: 20180608
